FAERS Safety Report 7151829-0 (Version None)
Quarter: 2010Q4

REPORT INFORMATION
  Report Type: 
  Country: None (occurrence: None)
  Receive Date: 20101210
  Receipt Date: 20101206
  Transmission Date: 20110411
  Serious: Yes (Other)
  Sender: FDA-Public Use
  Company Number: US-AMGEN INC.-QUU443746

PATIENT

DRUGS (3)
  1. NPLATE [Suspect]
     Indication: IDIOPATHIC THROMBOCYTOPENIC PURPURA
     Dosage: .5 A?G/KG, UNK
     Dates: start: 20100409, end: 20100702
  2. NPLATE [Suspect]
     Dates: start: 20100409, end: 20100702
  3. CORTICOSTEROID NOS [Concomitant]
     Dosage: UNK UNK, UNK
     Dates: start: 20100317

REACTIONS (4)
  - ABDOMINAL DISCOMFORT [None]
  - SPLENECTOMY [None]
  - THROMBOCYTOPENIA [None]
  - TRANSFUSION REACTION [None]
